FAERS Safety Report 6804388-3 (Version None)
Quarter: 2010Q2

REPORT INFORMATION
  Report Type: 
  Country: None (occurrence: None)
  Receive Date: 20100628
  Receipt Date: 20070608
  Transmission Date: 20101027
  Serious: No
  Sender: FDA-Public Use
  Company Number: US-PFIZER INC-2007015172

PATIENT
  Sex: Female
  Weight: 95.25 kg

DRUGS (5)
  1. GENOTROPIN [Suspect]
     Indication: GROWTH HORMONE DEFICIENCY
     Dates: start: 20070130
  2. METHOTREXATE [Suspect]
     Indication: PSORIASIS
  3. THYROID TAB [Concomitant]
  4. CORTISOL [Concomitant]
  5. ALL OTHER THERAPEUTIC PRODUCTS [Concomitant]

REACTIONS (1)
  - PSORIASIS [None]
